FAERS Safety Report 14987143 (Version 1)
Quarter: 2018Q2

REPORT INFORMATION
  Report Type: Spontaneous
  Country: DE (occurrence: DE)
  Receive Date: 20180608
  Receipt Date: 20180608
  Transmission Date: 20180711
  Serious: Yes (Hospitalization)
  Sender: FDA-Public Use
  Company Number: DE-TEVA-2018-DE-902976

PATIENT
  Age: 77 Year
  Sex: Male

DRUGS (15)
  1. PREGABALIN. [Suspect]
     Active Substance: PREGABALIN
     Dosage: 1-0-1-0
  2. INSULIN ASPART [Concomitant]
     Active Substance: INSULIN ASPART
     Dosage: REQUIREMENT
  3. TAMSULOSIN [Concomitant]
     Active Substance: TAMSULOSIN
     Dosage: 0-0-1-0
  4. NITRENDIPINE [Suspect]
     Active Substance: NITRENDIPINE
     Dosage: 1-0-0-1
  5. METOPROLOL. [Suspect]
     Active Substance: METOPROLOL
     Dosage: 1-0-1-0
  6. COLECALCIFEROL [Concomitant]
     Active Substance: CHOLECALCIFEROL
     Dosage: 0-0-1-0
  7. INSULIN GLARGIN [Concomitant]
     Active Substance: INSULIN GLARGINE
     Dosage: 0-0-1-0
  8. KALIUM [Concomitant]
     Active Substance: POTASSIUM CHLORIDE
     Dosage: 20 MVAL, REQUIREMENT
  9. PHENPROCOUMON [Concomitant]
     Active Substance: PHENPROCOUMON
     Dosage: TO INR
  10. FOLSAEURE [Concomitant]
     Active Substance: FOLIC ACID
     Dosage: 1-0-0-0
  11. CITALOPRAM [Concomitant]
     Active Substance: CITALOPRAM HYDROBROMIDE
     Dosage: 1-0-0-0
  12. FUROSEMIDE. [Suspect]
     Active Substance: FUROSEMIDE
     Dosage: 2-1-0-0
  13. XIPAMIDE [Suspect]
     Active Substance: XIPAMIDE
     Dosage: 1-0-0-0
  14. PANTOPRAZOL [Concomitant]
     Active Substance: PANTOPRAZOLE SODIUM
     Dosage: 0-0-0-1
  15. SIMVASTATIN. [Concomitant]
     Active Substance: SIMVASTATIN
     Dosage: 0-0-1-0

REACTIONS (1)
  - Fall [Unknown]

NARRATIVE: CASE EVENT DATE: 20150920
